FAERS Safety Report 13646708 (Version 1)
Quarter: 2017Q2

REPORT INFORMATION
  Report Type: Spontaneous
  Country: None (occurrence: US)
  Receive Date: 20170612
  Receipt Date: 20170612
  Transmission Date: 20170830
  Serious: No
  Sender: FDA-Public Use
  Company Number: None

PATIENT
  Age: 66 Year
  Sex: Female

DRUGS (1)
  1. JAKAFI [Suspect]
     Active Substance: RUXOLITINIB
     Route: 048
     Dates: start: 20161204

REACTIONS (4)
  - Blood sodium decreased [None]
  - Fatigue [None]
  - Malaise [None]
  - Blood glucose decreased [None]

NARRATIVE: CASE EVENT DATE: 20170501
